FAERS Safety Report 9844307 (Version 1)
Quarter: 2014Q1

REPORT INFORMATION
  Report Type: Spontaneous
  Country: FR (occurrence: None)
  Receive Date: 20140106
  Receipt Date: 20140106
  Transmission Date: 20141002
  Serious: Yes (Hospitalization)
  Sender: FDA-Public Use
  Company Number: FK201305330

PATIENT
  Age: 34 Year
  Sex: Female
  Weight: 85 kg

DRUGS (6)
  1. VOLUVEN [Suspect]
     Indication: GENERAL ANAESTHESIA
     Route: 042
     Dates: start: 20130826, end: 20130826
  2. EXACYL [Suspect]
     Indication: GENERAL ANAESTHESIA
     Route: 042
  3. NALADOR [Suspect]
     Indication: GENERAL ANAESTHESIA
     Route: 042
     Dates: start: 20130826, end: 20130826
  4. SYNTOCINON [Suspect]
     Indication: GENERAL ANAESTHESIA
     Route: 042
     Dates: start: 20130826, end: 20130826
  5. CLOTTAFACT [Suspect]
     Indication: GENERAL ANAESTHESIA
     Route: 042
     Dates: start: 20130826, end: 20130826
  6. RINGER LACTATE VIAFLO [Suspect]
     Route: 042

REACTIONS (12)
  - Renal failure acute [None]
  - Maternal exposure during delivery [None]
  - Oxygen saturation decreased [None]
  - Hypertension [None]
  - Heart rate increased [None]
  - Miosis [None]
  - Platelet count decreased [None]
  - Prothrombin time prolonged [None]
  - Pulmonary oedema [None]
  - Haemodialysis [None]
  - Renal tubular necrosis [None]
  - Renal failure chronic [None]
